FAERS Safety Report 14990426 (Version 1)
Quarter: 2018Q2

REPORT INFORMATION
  Report Type: Spontaneous
  Country: US (occurrence: US)
  Receive Date: 20180520
  Receipt Date: 20180520
  Transmission Date: 20180711
  Serious: Yes (Other)
  Sender: FDA-Public Use
  Company Number: None

PATIENT
  Age: 47 Year
  Sex: Female
  Weight: 83.25 kg

DRUGS (11)
  1. CONTRAVE ER 8-90MG TABLETS [Suspect]
     Active Substance: BUPROPION HYDROCHLORIDE\NALTREXONE HYDROCHLORIDE
     Indication: WEIGHT DECREASED
     Dosage: ?          QUANTITY:2 DF DOSAGE FORM;?
     Route: 048
     Dates: start: 20180115, end: 20180126
  2. ZOLOFT [Concomitant]
     Active Substance: SERTRALINE HYDROCHLORIDE
  3. LYSINE [Concomitant]
     Active Substance: LYSINE
  4. CALTRATE [Concomitant]
     Active Substance: CALCIUM CARBONATE
  5. VITAMIN C [Suspect]
     Active Substance: ASCORBIC ACID
  6. ZOCOR [Concomitant]
     Active Substance: SIMVASTATIN
  7. ESTRADIOL. [Concomitant]
     Active Substance: ESTRADIOL
  8. BIOTIN [Concomitant]
     Active Substance: BIOTIN
  9. HYZAAR [Concomitant]
     Active Substance: HYDROCHLOROTHIAZIDE\LOSARTAN POTASSIUM
  10. VITAMIN B12 [Concomitant]
     Active Substance: CYANOCOBALAMIN
  11. ZYRTEC-D ALLERGY AND CONGESTION [Concomitant]
     Active Substance: CETIRIZINE HYDROCHLORIDE\PSEUDOEPHEDRINE HYDROCHLORIDE

REACTIONS (1)
  - Chorioretinopathy [None]

NARRATIVE: CASE EVENT DATE: 20180125
